FAERS Safety Report 8423279-8 (Version None)
Quarter: 2012Q2

REPORT INFORMATION
  Report Type: 
  Country: None (occurrence: None)
  Receive Date: 20120608
  Receipt Date: 20120604
  Transmission Date: 20120825
  Serious: Yes (Hospitalization, Other)
  Sender: FDA-Public Use
  Company Number: PT-PFIZER INC-2012056615

PATIENT
  Age: 20 Year
  Sex: Male
  Weight: 70 kg

DRUGS (7)
  1. REFACTO [Suspect]
     Dosage: UNK
     Route: 042
     Dates: start: 20101001, end: 20101110
  2. REFACTO [Suspect]
     Dosage: 30 IU/KG, UNK
     Route: 042
     Dates: start: 20120203, end: 20120205
  3. REFACTO [Suspect]
     Dosage: 30 IU/KG, UNK
     Route: 042
     Dates: start: 20101005, end: 20101008
  4. REFACTO [Suspect]
     Dosage: 30 IU/KG, SINGLE
     Route: 042
     Dates: start: 20120215, end: 20120216
  5. REFACTO [Suspect]
     Indication: HAEMORRHAGE PROPHYLAXIS
     Dosage: 30 IU/KG, UNK
     Route: 042
     Dates: start: 20101005, end: 20101008
  6. REFACTO [Suspect]
     Dosage: 30 IU/KG, UNK
     Route: 042
     Dates: start: 20120328, end: 20120328
  7. REFACTO [Suspect]
     Dosage: 30 IU/KG, UNK
     Route: 042
     Dates: start: 20110314, end: 20110318

REACTIONS (4)
  - HAEMATOMA [None]
  - POST PROCEDURAL HAEMORRHAGE [None]
  - ANTI FACTOR VIII ANTIBODY POSITIVE [None]
  - ECCHYMOSIS [None]
